FAERS Safety Report 16521005 (Version 1)
Quarter: 2019Q3

REPORT INFORMATION
  Report Type: Spontaneous
  Country: ES (occurrence: ES)
  Receive Date: 20190703
  Receipt Date: 20190703
  Transmission Date: 20191004
  Serious: Yes (Other)
  Sender: FDA-Public Use
  Company Number: ES-LUPIN PHARMACEUTICALS INC.-2018-05910

PATIENT
  Sex: Female

DRUGS (2)
  1. SIMVASTATIN. [Suspect]
     Active Substance: SIMVASTATIN
     Indication: HAEMORRHAGE PROPHYLAXIS
     Dosage: 20 MG, QD (1 CAPSULE, TITRATION)
     Route: 048
  2. SIMVASTATIN. [Suspect]
     Active Substance: SIMVASTATIN
     Dosage: 40 MG, QD (2 CAPSULES)
     Route: 048

REACTIONS (1)
  - Rhabdomyolysis [Recovered/Resolved]
